FAERS Safety Report 6318364-0 (Version None)
Quarter: 2009Q3

REPORT INFORMATION
  Report Type: 
  Country: None (occurrence: None)
  Receive Date: 20090820
  Receipt Date: 20090820
  Transmission Date: 20100115
  Serious: Yes (Hospitalization)
  Sender: FDA-Public Use
  Company Number: None

PATIENT
  Sex: Female
  Weight: 100.9 kg

DRUGS (2)
  1. CISPLATIN [Suspect]
     Dosage: 190 MG
     Dates: end: 20090720
  2. PACLITAXEL [Suspect]
     Dosage: 432 MG
     Dates: end: 20090720

REACTIONS (5)
  - ATRIAL FLUTTER [None]
  - ATRIOVENTRICULAR BLOCK [None]
  - EATING DISORDER [None]
  - NEUTROPENIA [None]
  - SUPRAVENTRICULAR TACHYCARDIA [None]
